FAERS Safety Report 5249030-0 (Version None)
Quarter: 2007Q1

REPORT INFORMATION
  Report Type: 
  Country: None (occurrence: None)
  Receive Date: 20070228
  Receipt Date: 20060731
  Transmission Date: 20070707
  Serious: No
  Sender: FDA-Public Use
  Company Number: US-GLAXOSMITHKLINE-A0608114A

PATIENT
  Age: 61 Year
  Sex: Female

DRUGS (3)
  1. VALTREX [Suspect]
     Route: 048
     Dates: start: 20060501
  2. ZOVIRAX [Suspect]
  3. TAPAZOLE [Concomitant]

REACTIONS (3)
  - DRUG INEFFECTIVE [None]
  - FATIGUE [None]
  - TACHYPNOEA [None]
